FAERS Safety Report 17945027 (Version 4)
Quarter: 2020Q3

REPORT INFORMATION
  Report Type: Spontaneous
  Country: DE (occurrence: DE)
  Receive Date: 20200626
  Receipt Date: 20200722
  Transmission Date: 20201103
  Serious: Yes (Death, Hospitalization)
  Sender: FDA-Public Use
  Company Number: DE-CELLTRION INC.-2020DE023634

PATIENT

DRUGS (6)
  1. RITUXIMAB (UNKNOWN) [Suspect]
     Active Substance: RITUXIMAB
     Indication: MANTLE CELL LYMPHOMA
     Dosage: MAINTENANCE THERAPY
     Route: 065
  2. IBRUTINIB [Suspect]
     Active Substance: IBRUTINIB
     Dosage: UNK, DAILY
     Route: 048
  3. RITUXIMAB (UNKNOWN) [Suspect]
     Active Substance: RITUXIMAB
     Indication: CHRONIC KIDNEY DISEASE
     Dosage: UNK
     Route: 065
  4. IBRUTINIB [Suspect]
     Active Substance: IBRUTINIB
     Indication: CHRONIC KIDNEY DISEASE
     Dosage: MAINTENANCE THERAPY, DAILY
     Route: 048
  5. RITUXIMAB (UNKNOWN) [Suspect]
     Active Substance: RITUXIMAB
     Dosage: UNK
  6. IBRUTINIB [Suspect]
     Active Substance: IBRUTINIB
     Indication: MANTLE CELL LYMPHOMA
     Dosage: UNK, DAILY
     Route: 048

REACTIONS (5)
  - Respiratory failure [Fatal]
  - COVID-19 [Fatal]
  - COVID-19 pneumonia [Fatal]
  - Viraemia [Fatal]
  - Product use in unapproved indication [Unknown]
